FAERS Safety Report 6081114-X (Version None)
Quarter: 2009Q1

REPORT INFORMATION
  Report Type: 
  Country: None (occurrence: None)
  Receive Date: 20090217
  Receipt Date: 20090202
  Transmission Date: 20090719
  Serious: Yes (Other)
  Sender: FDA-Public Use
  Company Number: CA-GENENTECH-277043

PATIENT
  Sex: Female

DRUGS (2)
  1. RITUXAN [Suspect]
     Indication: AUTOIMMUNE DISORDER
     Dosage: 716.25 MG, UNK
     Route: 042
     Dates: start: 20090122
  2. WARFARIN SODIUM [Suspect]
     Indication: DRUG USE FOR UNKNOWN INDICATION
     Dosage: UNK
     Route: 048
     Dates: start: 20090101

REACTIONS (5)
  - ABDOMINAL DISTENSION [None]
  - ANOREXIA [None]
  - HEADACHE [None]
  - NAUSEA [None]
  - VISION BLURRED [None]
